FAERS Safety Report 8399031 (Version 2)
Quarter: 2012Q4

REPORT INFORMATION
  Report Type: 
  Country: US (occurrence: US)
  Receive Date: 20120210
  Receipt Date: 20121101
  Transmission Date: 20130627
  Serious: Yes (Other)
  Sender: FDA-Public Use
  Company Number: US-PFIZER INC-2012032932

PATIENT
  Age: 51 Year
  Sex: Female
  Weight: 61.22 kg

DRUGS (4)
  1. LYRICA [Suspect]
     Indication: FIBROMYALGIA
     Dosage: 75 mg, 2x/day
     Route: 048
     Dates: end: 201209
  2. BONIVA [Concomitant]
     Dosage: 150 mg, monthly
  3. TRICOR [Concomitant]
     Indication: HIGH CHOLESTEROL
     Dosage: 145 mg, UNK
  4. PREMARIN [Concomitant]
     Dosage: 1.25 mg, UNK

REACTIONS (6)
  - Foot fracture [Unknown]
  - Arthritis [Unknown]
  - Pain [Unknown]
  - Malaise [Unknown]
  - Feeling abnormal [Unknown]
  - Vitamin D decreased [Unknown]
